FAERS Safety Report 7266845-8 (Version None)
Quarter: 2011Q1

REPORT INFORMATION
  Report Type: 
  Country: None (occurrence: None)
  Receive Date: 20110121
  Receipt Date: 20110104
  Transmission Date: 20110831
  Serious: Yes (Other)
  Sender: FDA-Public Use
  Company Number: CIO10017386

PATIENT
  Age: 21 Year
  Sex: Female
  Weight: 63.5 kg

DRUGS (3)
  1. CREST 3D WHITE MULTI-CARE WHITENING ORAL RINSE, FRESH MINT FLAVOR(HYDR [Suspect]
     Indication: TOOTH DISCOLOURATION
     Dosage: APPLIC, 2 /DAY, INTRAORAL
     Route: 048
     Dates: start: 20100705, end: 20100807
  2. CREST 3D WHITE VIVID TOOTHPASTE, RADIANT MINT(SODIUM FLUORIDE 0.243 %, [Suspect]
     Indication: TOOTH DISCOLOURATION
     Dosage: APPLIC, 2 /DAY, INTRAORAL
     Route: 048
     Dates: start: 20100705, end: 20100807
  3. PORTIA-28 (ETHINYLESTRADIOL, LEVONORGESTREL) [Concomitant]

REACTIONS (7)
  - DYSPNOEA [None]
  - OEDEMA MOUTH [None]
  - ORAL PAIN [None]
  - PHARYNGEAL OEDEMA [None]
  - ORAL DISCOMFORT [None]
  - STOMATITIS [None]
  - LIP SWELLING [None]
